FAERS Safety Report 7987184-3 (Version None)
Quarter: 2011Q4

REPORT INFORMATION
  Report Type: 
  Country: None (occurrence: None)
  Receive Date: 20111216
  Receipt Date: 20111006
  Transmission Date: 20120403
  Serious: No
  Sender: FDA-Public Use
  Company Number: US-BRISTOL-MYERS SQUIBB COMPANY-16139446

PATIENT
  Age: 58 Year
  Sex: Female
  Weight: 82 kg

DRUGS (2)
  1. ABILIFY [Suspect]
     Indication: DEPRESSION
     Dates: start: 20110901, end: 20110101
  2. CELEXA [Concomitant]

REACTIONS (6)
  - INSOMNIA [None]
  - DIZZINESS [None]
  - FEELING ABNORMAL [None]
  - MUSCLE TWITCHING [None]
  - DYSKINESIA [None]
  - DISTURBANCE IN ATTENTION [None]
